FAERS Safety Report 5241188-2 (Version None)
Quarter: 2007Q1

REPORT INFORMATION
  Report Type: 
  Country: None (occurrence: None)
  Receive Date: 20070220
  Receipt Date: 20070207
  Transmission Date: 20070707
  Serious: Yes (Hospitalization)
  Sender: FDA-Public Use
  Company Number: PHBS2007BR02537

PATIENT
  Age: 62 Year
  Sex: Female
  Weight: 76 kg

DRUGS (6)
  1. MODURETIC 5-50 [Concomitant]
     Dosage: 50 MG, QD
     Route: 048
  2. AMLODIPINE BESYLATE [Concomitant]
     Dosage: 1 TABLET/DAY
     Route: 048
  3. GLUCOFORMIN [Concomitant]
     Dosage: 500 MG, QD
     Route: 048
  4. DIOCOMB SI [Suspect]
     Indication: CARDIAC DISORDER
     Dosage: VALS 80 / SIMV 10 MG/DAY
     Route: 048
     Dates: end: 20061109
  5. DIOCOMB SI [Suspect]
     Dosage: VALS 80 / SIMV 20 MG/DAY
     Route: 048
     Dates: start: 20061109
  6. DIOCOMB SI [Suspect]
     Dosage: VLAS 80 / SIMV 10 MG/DAY
     Route: 048

REACTIONS (1)
  - RECTAL CANCER [None]
